FAERS Safety Report 21435677 (Version 1)
Quarter: 2022Q4

REPORT INFORMATION
  Report Type: Spontaneous
  Country: US (occurrence: US)
  Receive Date: 20221010
  Receipt Date: 20221010
  Transmission Date: 20230113
  Serious: Yes (Other)
  Sender: FDA-Public Use
  Company Number: US-SA-SAC20221007000357

PATIENT
  Sex: Female
  Weight: 53.5 kg

DRUGS (6)
  1. DUPIXENT [Suspect]
     Active Substance: DUPILUMAB
     Indication: Illness
     Dosage: 300 MG, QOW
     Route: 058
  2. VERAPAMIL [Concomitant]
     Active Substance: VERAPAMIL HYDROCHLORIDE
  3. METOPROLOL TARTRATE [Concomitant]
     Active Substance: METOPROLOL TARTRATE
  4. LETROZOLE [Concomitant]
     Active Substance: LETROZOLE
  5. COLACE [Concomitant]
     Active Substance: DOCUSATE SODIUM
  6. FONDAPARINUX [Concomitant]
     Active Substance: FONDAPARINUX

REACTIONS (2)
  - Cardiac failure congestive [Unknown]
  - Cough [Not Recovered/Not Resolved]
